FAERS Safety Report 23515914 (Version 1)
Quarter: 2024Q1

REPORT INFORMATION
  Report Type: Spontaneous
  Country: FR (occurrence: FR)
  Receive Date: 20240213
  Receipt Date: 20240213
  Transmission Date: 20240410
  Serious: Yes (Hospitalization)
  Sender: FDA-Public Use
  Company Number: None

PATIENT
  Age: 82 Year
  Sex: Female
  Weight: 105 kg

DRUGS (9)
  1. DOLIPRANE [Suspect]
     Active Substance: ACETAMINOPHEN
     Indication: Pain
     Dosage: 4 G, QD
     Route: 048
     Dates: start: 20231025, end: 20231113
  2. LOVENOX [Suspect]
     Active Substance: ENOXAPARIN SODIUM
     Indication: Thrombosis prophylaxis
     Dosage: 1 DF, QD
     Route: 058
     Dates: start: 20231019, end: 20231112
  3. BETAMETHASONE\GENTAMICIN [Suspect]
     Active Substance: BETAMETHASONE\GENTAMICIN
     Indication: Encephalitis brain stem
     Dosage: 1 DF, QD
     Route: 042
     Dates: start: 20231020, end: 20231026
  4. AMOXICILLIN [Suspect]
     Active Substance: AMOXICILLIN
     Indication: Encephalitis brain stem
     Dosage: 12 G, QD
     Route: 042
     Dates: start: 20231020, end: 20231111
  5. CEFOTAXIME SODIUM [Suspect]
     Active Substance: CEFOTAXIME SODIUM
     Indication: Encephalitis brain stem
     Dosage: 18 G, QD
     Route: 042
     Dates: start: 20231020, end: 20231027
  6. IOBITRIDOL [Suspect]
     Active Substance: IOBITRIDOL
     Indication: Computerised tomogram
     Dosage: 1 DF, QD
     Route: 042
     Dates: start: 20231023, end: 20231023
  7. CLARISCAN [Suspect]
     Active Substance: GADOTERATE MEGLUMINE
     Indication: Magnetic resonance imaging
     Dosage: 1 DF, QD
     Route: 042
     Dates: start: 20231030, end: 20231030
  8. CLARISCAN [Suspect]
     Active Substance: GADOTERATE MEGLUMINE
     Dosage: 1 DF, QD
     Route: 042
     Dates: start: 20231026, end: 20231026
  9. CLARISCAN [Suspect]
     Active Substance: GADOTERATE MEGLUMINE
     Dosage: 1 DF, QD
     Route: 042
     Dates: start: 20231020, end: 20231020

REACTIONS (1)
  - Rash maculo-papular [Recovering/Resolving]

NARRATIVE: CASE EVENT DATE: 20231030
